FAERS Safety Report 7424920-9 (Version None)
Quarter: 2011Q2

REPORT INFORMATION
  Report Type: 
  Country: None (occurrence: None)
  Receive Date: 20110419
  Receipt Date: 20110414
  Transmission Date: 20111010
  Serious: Yes (Hospitalization)
  Sender: FDA-Public Use
  Company Number: US-B.I. PHARMACEUTICALS,INC./RIDGEFIELD-2010-BP-13419BP

PATIENT
  Age: 80 Year
  Sex: Female

DRUGS (11)
  1. METOPROLOL SUCCINATE [Concomitant]
  2. SYNTHROID [Concomitant]
  3. PRADAXA [Suspect]
     Indication: ATRIAL FIBRILLATION
     Dosage: 300 MG
     Route: 048
     Dates: start: 20101117
  4. PROPAFENONE HCL [Concomitant]
  5. PRADAXA [Suspect]
     Indication: HEART RATE IRREGULAR
  6. VITAMIN D [Concomitant]
  7. VITAMIN MULTIPLE [Concomitant]
  8. BIOTIN [Concomitant]
  9. VITAMIN E [Concomitant]
  10. CITRACAL + D [Concomitant]
  11. FISH OIL [Concomitant]

REACTIONS (4)
  - CONSTIPATION [None]
  - CARDIAC ABLATION [None]
  - FATIGUE [None]
  - HAEMATOCHEZIA [None]
